FAERS Safety Report 16139735 (Version 1)
Quarter: 2019Q1

REPORT INFORMATION
  Report Type: Spontaneous
  Country: FR (occurrence: FR)
  Receive Date: 20190330
  Receipt Date: 20190330
  Transmission Date: 20190418
  Serious: Yes (Hospitalization)
  Sender: FDA-Public Use
  Company Number: PHHY2019FR071637

PATIENT
  Age: 75 Year
  Sex: Female

DRUGS (2)
  1. NOZINAN [Suspect]
     Active Substance: LEVOMEPROMAZINE
     Indication: TOXICITY TO VARIOUS AGENTS
     Dosage: 1500 MG, 1 TOTAL
     Route: 048
     Dates: start: 20121105, end: 20121105
  2. ZOLPIDEM [Suspect]
     Active Substance: ZOLPIDEM\ZOLPIDEM TARTRATE
     Indication: TOXICITY TO VARIOUS AGENTS
     Dosage: 560 MG, 1 TOTAL
     Route: 048
     Dates: start: 20121105, end: 20121105

REACTIONS (3)
  - Bradycardia [Recovered/Resolved]
  - Hypothermia [Recovered/Resolved]
  - Depressed level of consciousness [Recovered/Resolved]

NARRATIVE: CASE EVENT DATE: 20121105
